FAERS Safety Report 6808802-9 (Version None)
Quarter: 2010Q2

REPORT INFORMATION
  Report Type: 
  Country: None (occurrence: None)
  Receive Date: 20100630
  Receipt Date: 20091029
  Transmission Date: 20101027
  Serious: No
  Sender: FDA-Public Use
  Company Number: US-PFIZER INC-2009261917

PATIENT
  Sex: Male
  Weight: 86.2 kg

DRUGS (3)
  1. VIAGRA [Suspect]
     Dates: start: 20090801
  2. SYNTHROID [Concomitant]
     Indication: THYROID DISORDER
     Dosage: 0.1 MG, 1X/DAY DAILY DOSE: 0.1 MG
     Route: 048
  3. LISINOPRIL [Concomitant]
     Indication: HYPERTENSION
     Dosage: 20 MG, 1X/DAY DAILY DOSE:20 MG
     Route: 048

REACTIONS (3)
  - DISCOMFORT [None]
  - DRUG INEFFECTIVE [None]
  - SENSATION OF BLOOD FLOW [None]
